FAERS Safety Report 8491571-7 (Version None)
Quarter: 2012Q3

REPORT INFORMATION
  Report Type: 
  Country: None (occurrence: None)
  Receive Date: 20120706
  Receipt Date: 20120703
  Transmission Date: 20120928
  Serious: Yes (Hospitalization)
  Sender: FDA-Public Use
  Company Number: FR-BAYER-2012-066602

PATIENT
  Age: 68 Year
  Sex: Male

DRUGS (1)
  1. LEVITRA [Suspect]
     Indication: ERECTILE DYSFUNCTION
     Dosage: 10 MG, QD
     Route: 048
     Dates: start: 20111207, end: 20111207

REACTIONS (2)
  - CEREBROVASCULAR ACCIDENT [None]
  - INTRAVENTRICULAR HAEMORRHAGE [None]
